FAERS Safety Report 5818405-0 (Version None)
Quarter: 2008Q3

REPORT INFORMATION
  Report Type: 
  Country: None (occurrence: None)
  Receive Date: 20080716
  Receipt Date: 20080708
  Transmission Date: 20090109
  Serious: Yes (Life-Threatening, Hospitalization)
  Sender: FDA-Public Use
  Company Number: 2008SP011440

PATIENT
  Age: 63 Year
  Sex: Male

DRUGS (7)
  1. TEMOZOLOMIDE [Suspect]
     Indication: METASTATIC MALIGNANT MELANOMA
     Dosage: 270 MG; PO
     Route: 048
     Dates: start: 20080514, end: 20080603
  2. BEVACIZUMAB (BEVACIZUMAB) [Suspect]
     Indication: METASTATIC MALIGNANT MELANOMA
     Dosage: 700 MG; IV
     Route: 042
     Dates: start: 20080514, end: 20080528
  3. DAFALGAN [Concomitant]
  4. NEXIUM [Concomitant]
  5. IBUPRIN [Concomitant]
  6. DURAGESIC-100 [Concomitant]
  7. ZOFRAN [Concomitant]

REACTIONS (4)
  - DRUG TOXICITY [None]
  - HAEMATURIA [None]
  - NEUTROPENIA [None]
  - THROMBOCYTOPENIA [None]
